FAERS Safety Report 9525926 (Version 1)
Quarter: 2013Q3

REPORT INFORMATION
  Report Type: Spontaneous
  Country: US (occurrence: US)
  Receive Date: 20130916
  Receipt Date: 20130916
  Transmission Date: 20140515
  Serious: No
  Sender: FDA-Public Use
  Company Number: US-BIOGENIDEC-2013BI085343

PATIENT
  Age: 49 Year
  Sex: Female

DRUGS (8)
  1. TYSABRI [Suspect]
     Indication: MULTIPLE SCLEROSIS
     Route: 042
     Dates: start: 20061003, end: 20070110
  2. TYSABRI [Suspect]
     Indication: MULTIPLE SCLEROSIS
     Route: 042
     Dates: start: 20090204
  3. BENADRYL [Concomitant]
     Indication: PRODUCT USED FOR UNKNOWN INDICATION
     Route: 048
  4. BACLOFEN [Concomitant]
     Indication: PRODUCT USED FOR UNKNOWN INDICATION
     Route: 048
  5. TIZANIDINE [Concomitant]
     Indication: PRODUCT USED FOR UNKNOWN INDICATION
     Route: 048
  6. CLONAZEPAM [Concomitant]
     Indication: PRODUCT USED FOR UNKNOWN INDICATION
     Route: 048
  7. PEPCID [Concomitant]
     Indication: PRODUCT USED FOR UNKNOWN INDICATION
     Route: 048
  8. TYLENOL [Concomitant]
     Indication: PRODUCT USED FOR UNKNOWN INDICATION
     Route: 048

REACTIONS (8)
  - Mental impairment [Unknown]
  - Musculoskeletal stiffness [Recovered/Resolved]
  - Muscle spasms [Recovered/Resolved]
  - Dysphonia [Recovered/Resolved]
  - Dyspnoea [Recovered/Resolved]
  - Pruritus [Recovered/Resolved]
  - Feeling drunk [Unknown]
  - Somnolence [Unknown]
